FAERS Safety Report 17190872 (Version 2)
Quarter: 2020Q1

REPORT INFORMATION
  Report Type: Report from Study
  Country: KR (occurrence: KR)
  Receive Date: 20191223
  Receipt Date: 20200107
  Transmission Date: 20200409
  Serious: Yes (Death)
  Sender: FDA-Public Use
  Company Number: KR-B.I. PHARMACEUTICALS,INC./RIDGEFIELD-2019-BI-121192

PATIENT
  Age: 62 Year
  Sex: Male
  Weight: 64 kg

DRUGS (13)
  1. BACLOFEN. [Suspect]
     Active Substance: BACLOFEN
     Indication: HYPOTONIA
  2. DIABEX [Concomitant]
     Active Substance: METFORMIN HYDROCHLORIDE
     Indication: DIABETES MELLITUS
     Route: 048
     Dates: start: 20190704, end: 20191128
  3. IRCODON [Concomitant]
     Active Substance: OXYCODONE HYDROCHLORIDE
     Indication: PAIN PROPHYLAXIS
     Route: 048
     Dates: start: 20190928, end: 20191122
  4. TYLENOL ER [Suspect]
     Active Substance: ACETAMINOPHEN
     Indication: PAIN PROPHYLAXIS
     Route: 048
     Dates: start: 20190928, end: 20191124
  5. DUPHALAC EASY STR [Suspect]
     Active Substance: LACTULOSE
     Indication: GASTROINTESTINAL DISORDER PROPHYLAXIS
     Route: 048
     Dates: start: 20190928, end: 20191122
  6. LEVOTUSS [Suspect]
     Active Substance: LEVODROPROPIZINE
     Indication: PROPHYLAXIS
     Route: 048
     Dates: start: 20190928, end: 20191124
  7. GILOTRIF [Suspect]
     Active Substance: AFATINIB
     Indication: NON-SMALL CELL LUNG CANCER
     Route: 048
     Dates: start: 20191024, end: 20191125
  8. BACLOFEN. [Suspect]
     Active Substance: BACLOFEN
     Indication: PROPHYLAXIS
     Route: 048
     Dates: start: 20190928, end: 20191206
  9. SUGANON [Suspect]
     Active Substance: EVOGLIPTIN TARTRATE
     Indication: DIABETES MELLITUS
     Route: 048
     Dates: start: 20190704, end: 20191128
  10. DIAMICRON [Suspect]
     Active Substance: GLICLAZIDE
     Indication: DIABETES MELLITUS
     Route: 048
     Dates: start: 20190704, end: 20191128
  11. ERDOS [Suspect]
     Active Substance: ERDOSTEINE
     Indication: PROPHYLAXIS
     Route: 048
     Dates: start: 20190928, end: 20191124
  12. ERDOS [Suspect]
     Active Substance: ERDOSTEINE
     Indication: PRODUCTIVE COUGH
  13. LEVOTUSS [Suspect]
     Active Substance: LEVODROPROPIZINE
     Indication: COUGH

REACTIONS (1)
  - Malignant neoplasm progression [Fatal]

NARRATIVE: CASE EVENT DATE: 20191111
